FAERS Safety Report 14002801 (Version 1)
Quarter: 2017Q3

REPORT INFORMATION
  Report Type: Spontaneous
  Country: US (occurrence: US)
  Receive Date: 20170922
  Receipt Date: 20170922
  Transmission Date: 20171128
  Serious: No
  Sender: FDA-Public Use
  Company Number: US-AMGEN-USASP2017066462

PATIENT
  Sex: Female
  Weight: 59 kg

DRUGS (1)
  1. NEUPOGEN [Suspect]
     Active Substance: FILGRASTIM
     Indication: AUTOIMMUNE NEUTROPENIA
     Dosage: 300 MUG, Q2WK
     Route: 065

REACTIONS (5)
  - Unevaluable event [Unknown]
  - Drug dose omission [Unknown]
  - Influenza [Unknown]
  - Malaise [Unknown]
  - Swelling [Unknown]

NARRATIVE: CASE EVENT DATE: 2017
